FAERS Safety Report 10600987 (Version 1)
Quarter: 2014Q4

REPORT INFORMATION
  Report Type: Report from Study
  Country: JP (occurrence: JP)
  Receive Date: 20141124
  Receipt Date: 20141124
  Transmission Date: 20150529
  Serious: Yes (Death)
  Sender: FDA-Public Use
  Company Number: JP-TEVA-524388ISR

PATIENT

DRUGS (4)
  1. ETOPOSIDE. [Suspect]
     Active Substance: ETOPOSIDE
     Indication: SMALL CELL LUNG CANCER LIMITED STAGE
     Dosage: ON DAYS 1-3 (INDUCTION)
     Route: 042
  2. ETOPOSIDE. [Suspect]
     Active Substance: ETOPOSIDE
     Dosage: 4.7619 MG/M2 DAILY; ON DAYS 1-3, FOR 3 CYCLES (CONSOLIDATION)
     Route: 042
  3. CISPLATIN. [Suspect]
     Active Substance: CISPLATIN
     Indication: SMALL CELL LUNG CANCER LIMITED STAGE
     Dosage: ON DAY 1 (INDUCTION)
     Route: 042
  4. CISPLATIN. [Suspect]
     Active Substance: CISPLATIN
     Dosage: FOR 3 CYCLES (CONCOLIDATION)
     Route: 042

REACTIONS (1)
  - Radiation pneumonitis [Fatal]
